FAERS Safety Report 25076720 (Version 9)
Quarter: 2025Q3

REPORT INFORMATION
  Report Type: Report from Study
  Country: US (occurrence: US)
  Receive Date: 20250313
  Receipt Date: 20250910
  Transmission Date: 20251021
  Serious: Yes (Other)
  Sender: SUNOVION
  Company Number: US-SMPA-2025SPA002329AA

PATIENT
  Age: 82 Year
  Sex: Male

DRUGS (6)
  1. ORGOVYX [Suspect]
     Active Substance: RELUGOLIX
     Indication: Prostate cancer
     Dosage: 360 MG, SINGLE
     Route: 048
     Dates: start: 20250219, end: 20250219
  2. ORGOVYX [Suspect]
     Active Substance: RELUGOLIX
     Dosage: 120 MG, QD
     Route: 048
     Dates: start: 20250220
  3. LIPITOR [Concomitant]
     Active Substance: ATORVASTATIN CALCIUM
  4. FINASTERIDE [Concomitant]
     Active Substance: FINASTERIDE
  5. DEXILANT [Concomitant]
     Active Substance: DEXLANSOPRAZOLE
  6. NORVASC [Concomitant]
     Active Substance: AMLODIPINE BESYLATE

REACTIONS (18)
  - Tumour ablation [Unknown]
  - Muscle spasms [Unknown]
  - Decreased appetite [Unknown]
  - Nocturia [Unknown]
  - Brain fog [Unknown]
  - Nasal congestion [Unknown]
  - Abdominal distension [Unknown]
  - Erectile dysfunction [Unknown]
  - Anxiety [Unknown]
  - Hypersensitivity [Unknown]
  - Dizziness [Unknown]
  - Insomnia [Unknown]
  - Hot flush [Unknown]
  - Diarrhoea [Unknown]
  - Fatigue [Unknown]
  - Headache [Unknown]
  - Libido decreased [Unknown]
  - Weight increased [Unknown]
